FAERS Safety Report 24796821 (Version 9)
Quarter: 2025Q4

REPORT INFORMATION
  Report Type: Report from Study
  Country: US (occurrence: US)
  Receive Date: 20250101
  Receipt Date: 20251209
  Transmission Date: 20260117
  Serious: Yes (Hospitalization, Other)
  Sender: UCB
  Company Number: US-UCBSA-2024064839

PATIENT
  Age: 13 Year
  Weight: 38 kg

DRUGS (12)
  1. FENFLURAMINE [Suspect]
     Active Substance: FENFLURAMINE
     Indication: Lennox-Gastaut syndrome
     Dosage: 5.9 MILLILITER, 2X/DAY (BID)
  2. FENFLURAMINE [Suspect]
     Active Substance: FENFLURAMINE
     Dosage: 5.9 MILLILITER, 2X/DAY (BID)
  3. FENFLURAMINE [Suspect]
     Active Substance: FENFLURAMINE
     Dosage: 3.5 MILLILITER, 2X/DAY (BID)
  4. FENFLURAMINE [Suspect]
     Active Substance: FENFLURAMINE
     Dosage: 6.2 MILLILITER, 2X/DAY (BID)
  5. FENFLURAMINE [Suspect]
     Active Substance: FENFLURAMINE
     Dosage: 1.5 MILLILITER, 2X/DAY (BID)
  6. FENFLURAMINE [Suspect]
     Active Substance: FENFLURAMINE
     Dosage: 1.5 MILLILITER, 2X/DAY (BID)
  7. FENFLURAMINE [Suspect]
     Active Substance: FENFLURAMINE
     Dosage: 3.5 MILLIGRAM/KILOGRAM, ONCE DAILY (QD)
  8. FENFLURAMINE [Suspect]
     Active Substance: FENFLURAMINE
     Dosage: 2.5 MILLILITER, 2X/DAY (BID)
  9. FENFLURAMINE [Suspect]
     Active Substance: FENFLURAMINE
     Dosage: 14 MILLIGRAM PER DAY, 0.34 MG/KG/DAY
  10. FENFLURAMINE [Suspect]
     Active Substance: FENFLURAMINE
     Dosage: 3.2 MILLILITER, 2X/DAY (BID)
  11. EPIDIOLEX [Concomitant]
     Active Substance: CANNABIDIOL
     Indication: Seizure
     Dosage: UNK
  12. Onsi [Concomitant]
     Indication: Seizure
     Dosage: UNK

REACTIONS (14)
  - Seizure [Not Recovered/Not Resolved]
  - Screaming [Not Recovered/Not Resolved]
  - Middle insomnia [Not Recovered/Not Resolved]
  - Crying [Not Recovered/Not Resolved]
  - Withdrawal syndrome [Not Recovered/Not Resolved]
  - Gelastic seizure [Not Recovered/Not Resolved]
  - Allan-Herndon-Dudley syndrome [Not Recovered/Not Resolved]
  - Somnolence [Unknown]
  - Tachycardia [Not Recovered/Not Resolved]
  - Irritability [Not Recovered/Not Resolved]
  - Retching [Not Recovered/Not Resolved]
  - Secretion discharge [Not Recovered/Not Resolved]
  - Vagal nerve stimulator implantation [Not Recovered/Not Resolved]
  - Drug ineffective [Not Recovered/Not Resolved]
